FAERS Safety Report 4387922-5 (Version None)
Quarter: 2004Q2

REPORT INFORMATION
  Report Type: 
  Country: None (occurrence: None)
  Receive Date: 20040607
  Receipt Date: 20031215
  Transmission Date: 20050107
  Serious: Yes (Other)
  Sender: FDA-Public Use
  Company Number: 354206

PATIENT
  Age: 19 Year
  Sex: Male

DRUGS (2)
  1. ACCUTANE [Suspect]
     Dosage: ORAL
     Route: 048
  2. NA [Suspect]
     Dosage: NA

REACTIONS (1)
  - BLOOD TRIGLYCERIDES INCREASED [None]
